FAERS Safety Report 17578005 (Version 4)
Quarter: 2025Q1

REPORT INFORMATION
  Report Type: Report from Study
  Country: US (occurrence: US)
  Receive Date: 20200324
  Receipt Date: 20250321
  Transmission Date: 20250409
  Serious: Yes (Hospitalization, Other)
  Sender: TAKEDA
  Company Number: US-SHIRE-US202010948

PATIENT
  Age: 15 Year
  Sex: Male

DRUGS (5)
  1. ANTI-INHIBITOR COAGULANT COMPLEX [Suspect]
     Active Substance: ANTI-INHIBITOR COAGULANT COMPLEX
     Indication: Product used for unknown indication
  2. ANTI-INHIBITOR COAGULANT COMPLEX [Suspect]
     Active Substance: ANTI-INHIBITOR COAGULANT COMPLEX
  3. ANTI-INHIBITOR COAGULANT COMPLEX [Suspect]
     Active Substance: ANTI-INHIBITOR COAGULANT COMPLEX
  4. ANTI-INHIBITOR COAGULANT COMPLEX [Suspect]
     Active Substance: ANTI-INHIBITOR COAGULANT COMPLEX
  5. ANTI-INHIBITOR COAGULANT COMPLEX [Suspect]
     Active Substance: ANTI-INHIBITOR COAGULANT COMPLEX

REACTIONS (13)
  - Ligament rupture [Unknown]
  - Ecchymosis [Unknown]
  - Poor venous access [Unknown]
  - Infusion site swelling [Unknown]
  - Vein rupture [Unknown]
  - Joint injury [Recovered/Resolved]
  - Joint swelling [Unknown]
  - Weight bearing difficulty [Unknown]
  - Arthralgia [Unknown]
  - Infusion related reaction [Recovered/Resolved]
  - Joint range of motion decreased [Unknown]
  - Incorrect dose administered [Unknown]
  - Headache [Recovered/Resolved]

NARRATIVE: CASE EVENT DATE: 20200215
